FAERS Safety Report 25805012 (Version 1)
Quarter: 2025Q3

REPORT INFORMATION
  Report Type: Spontaneous
  Country: EU (occurrence: EU)
  Receive Date: 20250916
  Receipt Date: 20250916
  Transmission Date: 20251020
  Serious: Yes (Life-Threatening, Hospitalization, Congenital Anomaly)
  Sender: ACCORD
  Company Number: None

PATIENT
  Age: 1 Hour
  Sex: Female
  Weight: 2.8 kg

DRUGS (1)
  1. SERTRALINE [Suspect]
     Active Substance: SERTRALINE HYDROCHLORIDE
     Indication: Panic disorder
     Dosage: MATERNAL USE OF 1 TABLET 1 TIME DAILY, STRENGTH: 100 MG
     Dates: start: 20240401

REACTIONS (5)
  - Foetal exposure during pregnancy [Unknown]
  - Newborn persistent pulmonary hypertension [Recovering/Resolving]
  - Small for dates baby [Recovering/Resolving]
  - Polycythaemia [Recovering/Resolving]
  - Heart rate irregular [Recovering/Resolving]
